FAERS Safety Report 16843397 (Version 3)
Quarter: 2020Q1

REPORT INFORMATION
  Report Type: Spontaneous
  Country: US (occurrence: US)
  Receive Date: 20190924
  Receipt Date: 20200218
  Transmission Date: 20200409
  Serious: Yes (Hospitalization)
  Sender: FDA-Public Use
  Company Number: US-CELGENEUS-USA-20190907015

PATIENT
  Age: 63 Year
  Sex: Male

DRUGS (18)
  1. DRONABINOL. [Concomitant]
     Active Substance: DRONABINOL
     Indication: DECREASED APPETITE
  2. GEMCITABINE. [Suspect]
     Active Substance: GEMCITABINE
     Dosage: 100 MILLIGRAM/SQ. METER
     Route: 041
     Dates: start: 20190710, end: 20190710
  3. GEMCITABINE. [Suspect]
     Active Substance: GEMCITABINE
     Dosage: 100 MILLIGRAM/SQ. METER
     Route: 041
     Dates: start: 20190731, end: 20190731
  4. GEMCITABINE. [Suspect]
     Active Substance: GEMCITABINE
     Dosage: 100 MILLIGRAM/SQ. METER
     Route: 041
     Dates: start: 20190814, end: 20190814
  5. GEMCITABINE. [Suspect]
     Active Substance: GEMCITABINE
     Dosage: 100 MILLIGRAM/SQ. METER
     Route: 041
     Dates: start: 20190703, end: 20190703
  6. PANCRELIPASE. [Concomitant]
     Active Substance: PANCRELIPASE
     Indication: HYPERTENSION
     Route: 048
     Dates: start: 20190530
  7. LISINOPRIL. [Concomitant]
     Active Substance: LISINOPRIL
     Indication: HYPERTENSION
     Dosage: 20 MILLIGRAM
     Route: 048
  8. AMLODIPINE [Concomitant]
     Active Substance: AMLODIPINE BESYLATE
     Indication: HYPERTENSION
     Dosage: 5 MILLIGRAM
     Route: 048
  9. ABRAXANE [Suspect]
     Active Substance: PACLITAXEL
     Dosage: 125 MILLIGRAM/SQ. METER
     Route: 041
     Dates: start: 20190731, end: 20190731
  10. GEMCITABINE. [Suspect]
     Active Substance: GEMCITABINE
     Dosage: 100 MILLIGRAM/SQ. METER
     Route: 041
     Dates: start: 20190807, end: 20190807
  11. MORPHINE [Concomitant]
     Active Substance: MORPHINE
     Indication: HYPERTENSION
     Dosage: 15 MILLIGRAM
     Route: 048
     Dates: start: 20190530
  12. DRONABINOL. [Concomitant]
     Active Substance: DRONABINOL
     Indication: HYPERTENSION
     Dosage: 15 MILLIGRAM
     Route: 048
     Dates: start: 20190530
  13. ABRAXANE [Suspect]
     Active Substance: PACLITAXEL
     Dosage: 125 MILLIGRAM/SQ. METER
     Route: 041
     Dates: start: 20190710, end: 20190710
  14. ABRAXANE [Suspect]
     Active Substance: PACLITAXEL
     Dosage: 125 MILLIGRAM/SQ. METER
     Route: 041
     Dates: start: 20190814, end: 20190814
  15. ABRAXANE [Suspect]
     Active Substance: PACLITAXEL
     Dosage: 125 MILLIGRAM/SQ. METER
     Route: 041
     Dates: start: 20190703, end: 20190703
  16. ABRAXANE [Suspect]
     Active Substance: PACLITAXEL
     Dosage: 125 MILLIGRAM/SQ. METER
     Route: 041
     Dates: start: 20190807, end: 20190807
  17. ABRAXANE [Suspect]
     Active Substance: PACLITAXEL
     Indication: DUCTAL ADENOCARCINOMA OF PANCREAS
     Dosage: 125 MILLIGRAM/SQ. METER
     Route: 041
     Dates: start: 20190414, end: 20190414
  18. GEMCITABINE. [Suspect]
     Active Substance: GEMCITABINE
     Indication: DUCTAL ADENOCARCINOMA OF PANCREAS
     Dosage: 100 MILLIGRAM/SQ. METER
     Route: 041
     Dates: start: 20190414, end: 20190414

REACTIONS (1)
  - Blood bilirubin increased [Recovered/Resolved]

NARRATIVE: CASE EVENT DATE: 20190620
